FAERS Safety Report 6706644-6 (Version None)
Quarter: 2010Q2

REPORT INFORMATION
  Report Type: 
  Country: None (occurrence: None)
  Receive Date: 20100503
  Receipt Date: 20100426
  Transmission Date: 20101027
  Serious: Yes (Other)
  Sender: FDA-Public Use
  Company Number: CA-TEVA-232510USA

PATIENT
  Sex: Female

DRUGS (6)
  1. LANSOPRAZOLE DELAYED RELEASE CAPSULES USP, 15MG AND 30MG [Suspect]
     Route: 048
     Dates: start: 20090301
  2. LANSOPRAZOLE [Suspect]
     Route: 048
     Dates: start: 20080301, end: 20090301
  3. APO-LANSOPRAZOLE [Suspect]
  4. LOSARTAN POTASSIUM [Concomitant]
  5. LEVOTHYROXINE SODIUM [Concomitant]
  6. MELOXICAM [Concomitant]

REACTIONS (1)
  - AMYOTROPHIC LATERAL SCLEROSIS [None]
